FAERS Safety Report 6774713-0 (Version None)
Quarter: 2010Q2

REPORT INFORMATION
  Report Type: 
  Country: None (occurrence: None)
  Receive Date: 20100617
  Receipt Date: 20100610
  Transmission Date: 20101027
  Serious: Yes (Life-Threatening, Hospitalization)
  Sender: FDA-Public Use
  Company Number: US-ROCHE-705503

PATIENT
  Sex: Female
  Weight: 64.6 kg

DRUGS (6)
  1. PEGINTERFERON ALFA-2A [Suspect]
     Dosage: DOSE : 180G-MICROGRAM, MEDICATION TEMPORARILY HELD ON 22 MAY 2010. LAST DOSE : 18 MAY 2010.
     Route: 058
     Dates: start: 20100511
  2. RIBAVIRIN [Suspect]
     Dosage: TEMPORARILY HELD ON 22MAY2010. LAST DOSE:22 MAY 2010.COMMENT : 400MGQAMAN 600 MG Q PM EACH DAY.
     Route: 048
     Dates: start: 20100511
  3. NITAZOXANIDE [Suspect]
     Dosage: MEDICATION TEMPORARILY HELD ON 22 MAY 2010. LAST DOSE : 22 MAY 2010.
     Route: 048
     Dates: start: 20100414, end: 20100522
  4. VALTREX [Concomitant]
     Indication: HERPES SIMPLEX
     Dosage: DURATION OF USED: APPROXIMATELY 2 YEARS.
     Route: 048
     Dates: end: 20100522
  5. ZESTORETIC [Concomitant]
     Indication: HYPERTENSION
     Dosage: DURATION OF USED: APPROXIMATELY 2 YEARS.
     Route: 048
     Dates: end: 20100522
  6. DEPO-PROVERA [Concomitant]
     Indication: CONTRACEPTION
     Dosage: DURATION OF USE: 1 MONTH.
     Route: 030
     Dates: end: 20100413

REACTIONS (7)
  - ALANINE AMINOTRANSFERASE INCREASED [None]
  - ASPARTATE AMINOTRANSFERASE INCREASED [None]
  - BLOOD ALKALINE PHOSPHATASE INCREASED [None]
  - DIARRHOEA [None]
  - HYPOVOLAEMIA [None]
  - RENAL FAILURE ACUTE [None]
  - UTERINE LEIOMYOMA [None]
